FAERS Safety Report 17566589 (Version 1)
Quarter: 2020Q1

REPORT INFORMATION
  Report Type: Spontaneous
  Country: US (occurrence: US)
  Receive Date: 20200320
  Receipt Date: 20200320
  Transmission Date: 20200409
  Serious: Yes (Hospitalization, Other)
  Sender: FDA-Public Use
  Company Number: US-MYLANLABS-2020M1030592

PATIENT
  Age: 59 Year
  Sex: Male

DRUGS (1)
  1. MITOMYCIN. [Suspect]
     Active Substance: MITOMYCIN
     Indication: BLADDER CANCER
     Route: 043

REACTIONS (8)
  - Dystrophic calcification [Recovered/Resolved]
  - Nephrolithiasis [Recovered/Resolved]
  - Urinary tract infection enterococcal [Recovered/Resolved]
  - Administration site extravasation [Recovered/Resolved]
  - Pelvic fluid collection [Recovered/Resolved]
  - Hydroureter [Recovered/Resolved]
  - Vesical fistula [Recovered/Resolved]
  - Hydronephrosis [Recovered/Resolved]
